FAERS Safety Report 9680960 (Version 2)
Quarter: 2013Q4

REPORT INFORMATION
  Report Type: Spontaneous
  Country: JP (occurrence: JP)
  Receive Date: 20131111
  Receipt Date: 20131111
  Transmission Date: 20140711
  Serious: Yes (Hospitalization)
  Sender: FDA-Public Use
  Company Number: JP-SA-2013SA108426

PATIENT
  Age: 64 Year
  Sex: Female

DRUGS (4)
  1. ONETAXOTERE [Suspect]
     Indication: BREAST CANCER
     Route: 042
     Dates: start: 20131003, end: 20131003
  2. DECADRON PHOSPHATE [Concomitant]
     Indication: PROPHYLAXIS
     Dosage: DOSE: 4 MG/BODY/DAY
     Route: 042
     Dates: start: 20131003, end: 20131003
  3. PREDNISOLONE [Concomitant]
     Indication: RHEUMATIC DISORDER
     Dosage: DOSE: 1 TO 2 MG/BODY/DAY
     Route: 048
     Dates: start: 200802
  4. DECADRON [Concomitant]
     Indication: PROPHYLAXIS
     Dosage: DOSE: 4 MG/BODY/DAY
     Route: 048
     Dates: start: 20131004, end: 20131006

REACTIONS (2)
  - Shock [Recovered/Resolved]
  - Febrile neutropenia [Recovered/Resolved]
